FAERS Safety Report 19462412 (Version 2)
Quarter: 2021Q3

REPORT INFORMATION
  Report Type: Spontaneous
  Country: DE (occurrence: DE)
  Receive Date: 20210625
  Receipt Date: 20210707
  Transmission Date: 20211014
  Serious: Yes (Hospitalization, Other)
  Sender: FDA-Public Use
  Company Number: DE-009507513-2106DEU006058

PATIENT
  Age: 57 Year
  Sex: Male

DRUGS (2)
  1. MITOMYCIN. [Concomitant]
     Active Substance: MITOMYCIN
     Dosage: INSTILLATION 10 TIMES A WEEK
  2. BCG LIVE [Suspect]
     Active Substance: BACILLUS CALMETTE-GUERIN SUBSTRAIN TICE LIVE ANTIGEN
     Indication: BLADDER TRANSITIONAL CELL CARCINOMA RECURRENT
     Dosage: FIVE TIMES AT A TWO?MONTH INTERVAL

REACTIONS (3)
  - Peritonitis [Unknown]
  - Vesical fistula [Recovered/Resolved]
  - Granuloma [Unknown]
